FAERS Safety Report 9883724 (Version 2)
Quarter: 2014Q1

REPORT INFORMATION
  Report Type: Spontaneous
  Country: US (occurrence: US)
  Receive Date: 20140210
  Receipt Date: 20140222
  Transmission Date: 20141002
  Serious: No
  Sender: FDA-Public Use
  Company Number: US-009507513-1312USA008284

PATIENT
  Sex: Female
  Weight: 58.96 kg

DRUGS (4)
  1. MIRALAX [Suspect]
     Indication: CONSTIPATION
     Dosage: 17 G, 5 X PER WEEK
     Route: 048
     Dates: start: 2009
  2. SYNTHROID [Concomitant]
     Indication: HYPOTHYROIDISM
     Dosage: UNK, UNKNOWN
  3. BENAZEPRIL HYDROCHLORIDE [Concomitant]
     Indication: HYPERTENSION
     Dosage: UNK, UNKNOWN
  4. LANSOPRAZOLE [Concomitant]
     Indication: GASTROOESOPHAGEAL REFLUX DISEASE
     Dosage: UNK, UNKNOWN

REACTIONS (3)
  - Diarrhoea [Unknown]
  - Incorrect drug administration duration [Unknown]
  - Product solubility abnormal [Unknown]
